FAERS Safety Report 9443744 (Version 1)
Quarter: 2013Q3

REPORT INFORMATION
  Report Type: Spontaneous
  Country: GB (occurrence: GB)
  Receive Date: 20130806
  Receipt Date: 20130806
  Transmission Date: 20140515
  Serious: Yes (Other)
  Sender: FDA-Public Use
  Company Number: GB-ABBOTT-13P-167-1126548-00

PATIENT
  Age: 49 Year
  Sex: Female

DRUGS (4)
  1. ADALIMUMAB [Suspect]
  2. USTEKINUMAB [Interacting]
     Indication: PSORIASIS
  3. ACYCLOVIR [Concomitant]
  4. ACYCLOVIR [Concomitant]

REACTIONS (2)
  - Drug interaction [Unknown]
  - Erythema multiforme [Recovered/Resolved]
